FAERS Safety Report 4775992-1 (Version None)
Quarter: 2005Q3

REPORT INFORMATION
  Report Type: 
  Country: None (occurrence: None)
  Receive Date: 20050914
  Receipt Date: 20050329
  Transmission Date: 20060218
  Serious: Yes (Hospitalization)
  Sender: FDA-Public Use
  Company Number: 163-20785-05040018

PATIENT
  Age: 61 Year
  Sex: Male

DRUGS (1)
  1. THALOMID [Suspect]
     Indication: MULTIPLE MYELOMA
     Dosage: 50 MG DAILY ORAL
     Route: 048
     Dates: start: 20050214

REACTIONS (2)
  - CONDITION AGGRAVATED [None]
  - PNEUMONIA [None]
